FAERS Safety Report 19645708 (Version 1)
Quarter: 2021Q3

REPORT INFORMATION
  Report Type: Spontaneous
  Country: PT (occurrence: PT)
  Receive Date: 20210802
  Receipt Date: 20210802
  Transmission Date: 20211014
  Serious: Yes (Life-Threatening, Hospitalization)
  Sender: FDA-Public Use
  Company Number: PT-TEVA-2021-PT-1938033

PATIENT
  Age: 19 Year
  Sex: Male

DRUGS (8)
  1. LEVETIRACETAM. [Suspect]
     Active Substance: LEVETIRACETAM
     Indication: MYOCLONUS
     Route: 065
  2. DIAZEPAM. [Suspect]
     Active Substance: DIAZEPAM
     Indication: MYOCLONUS
     Route: 065
  3. MORPHINE [Suspect]
     Active Substance: MORPHINE
     Indication: MYOCLONUS
     Route: 065
  4. VALPROATE [Suspect]
     Active Substance: VALPROIC ACID
     Indication: MYOCLONUS
     Route: 065
  5. PROPOFOL. [Concomitant]
     Active Substance: PROPOFOL
     Indication: SEDATION
     Route: 065
  6. TRANEXAMIC ACID. [Suspect]
     Active Substance: TRANEXAMIC ACID
     Indication: WRONG PRODUCT ADMINISTERED
     Route: 037
  7. BUPIVACAINE. [Suspect]
     Active Substance: BUPIVACAINE
     Indication: ANAESTHESIA
     Route: 037
  8. MIDAZOLAM. [Concomitant]
     Active Substance: MIDAZOLAM
     Indication: SEDATION
     Route: 065

REACTIONS (5)
  - Drug ineffective [Unknown]
  - Product packaging confusion [Unknown]
  - Myoclonus [Recovered/Resolved]
  - Wrong product administered [Unknown]
  - Proctalgia [Recovered/Resolved]
